FAERS Safety Report 25103565 (Version 1)
Quarter: 2025Q1

REPORT INFORMATION
  Report Type: Report from Study
  Country: US (occurrence: US)
  Receive Date: 20250321
  Receipt Date: 20250321
  Transmission Date: 20250408
  Serious: Yes (Other)
  Sender: ALEXION PHARMACEUTICALS
  Company Number: US-AstraZeneca-CH-00829808A

PATIENT
  Weight: 67 kg

DRUGS (1)
  1. ACALABRUTINIB [Suspect]
     Active Substance: ACALABRUTINIB
     Indication: Chronic lymphocytic leukaemia
     Dosage: 100 MILLIGRAM, QD

REACTIONS (7)
  - Retinal melanoma [Unknown]
  - Diarrhoea [Unknown]
  - Dizziness [Unknown]
  - Muscular weakness [Unknown]
  - Pain in extremity [Unknown]
  - Depressed mood [Unknown]
  - Psychiatric symptom [Unknown]
